FAERS Safety Report 5970842-X (Version None)
Quarter: 2008Q4

REPORT INFORMATION
  Report Type: 
  Country: None (occurrence: None)
  Receive Date: 20081127
  Receipt Date: 20081013
  Transmission Date: 20090506
  Serious: Yes (Other)
  Sender: FDA-Public Use
  Company Number: US-JNJFOC-20081003635

PATIENT
  Sex: Male
  Weight: 106.6 kg

DRUGS (2)
  1. DURAGESIC-100 [Suspect]
     Indication: NERVOUS SYSTEM DISORDER
     Dosage: 75UG/HR + 50UG/HR
     Route: 062
     Dates: start: 20050101
  2. UNKNOWN MEDICATION [Concomitant]
     Indication: DRUG USE FOR UNKNOWN INDICATION

REACTIONS (3)
  - COMA [None]
  - HYPERSOMNIA [None]
  - INAPPROPRIATE SCHEDULE OF DRUG ADMINISTRATION [None]
